FAERS Safety Report 9239877 (Version 1)
Quarter: 2013Q2

REPORT INFORMATION
  Report Type: Spontaneous
  Country: US (occurrence: US)
  Receive Date: 20130418
  Receipt Date: 20130418
  Transmission Date: 20140414
  Serious: Yes (Other)
  Sender: FDA-Public Use
  Company Number: US-SANOFI-AVENTIS-2012SA032676

PATIENT
  Sex: 0

DRUGS (2)
  1. LOVENOX [Suspect]
     Indication: THROMBOSIS PROPHYLAXIS
     Dates: start: 201203
  2. CYKLOKAPRON [Suspect]
     Indication: PROPHYLAXIS
     Route: 042
     Dates: start: 201203, end: 201203

REACTIONS (1)
  - Pulmonary embolism [Not Recovered/Not Resolved]
